FAERS Safety Report 4803044-0 (Version None)
Quarter: 2005Q4

REPORT INFORMATION
  Report Type: 
  Country: None (occurrence: None)
  Receive Date: 20051019
  Receipt Date: 20050930
  Transmission Date: 20060501
  Serious: Yes (Hospitalization)
  Sender: FDA-Public Use
  Company Number: FR-GLAXOSMITHKLINE-B0396017A

PATIENT
  Age: 43 Year
  Sex: Male

DRUGS (2)
  1. CEFUROXIME AXETIL [Suspect]
     Indication: OTITIS EXTERNA
     Route: 048
     Dates: start: 20050913, end: 20050915
  2. ASPIRIN [Concomitant]
     Dosage: 500MG UNKNOWN
     Route: 048
     Dates: start: 20050913, end: 20050915

REACTIONS (16)
  - ANOREXIA [None]
  - ARTHRALGIA [None]
  - ARTHRITIS [None]
  - ASTHENIA [None]
  - CHILLS [None]
  - DIARRHOEA [None]
  - DYSPEPSIA [None]
  - INFECTION [None]
  - INTESTINAL MUCOSAL HYPERTROPHY [None]
  - NAUSEA [None]
  - OEDEMA PERIPHERAL [None]
  - PURPURA [None]
  - PYREXIA [None]
  - RASH [None]
  - THROMBOCYTHAEMIA [None]
  - VOMITING [None]
